FAERS Safety Report 18962649 (Version 1)
Quarter: 2021Q1

REPORT INFORMATION
  Report Type: Spontaneous
  Country: US (occurrence: US)
  Receive Date: 20210302
  Receipt Date: 20210302
  Transmission Date: 20210420
  Serious: Yes (Other)
  Sender: FDA-Public Use
  Company Number: None

PATIENT
  Age: 63 Year
  Sex: Male
  Weight: 88.65 kg

DRUGS (4)
  1. METFORMIN [Concomitant]
     Active Substance: METFORMIN HYDROCHLORIDE
  2. LISAPOR [Concomitant]
  3. OXYCODONE?ACETAMINOPHEN 10MG/325MG [Suspect]
     Active Substance: ACETAMINOPHEN\OXYCODONE HYDROCHLORIDE
     Indication: PAIN
     Dosage: ?          QUANTITY:1 TABLET(S);?
     Route: 048
     Dates: start: 20210121, end: 20210225
  4. VALIUM [Concomitant]
     Active Substance: DIAZEPAM

REACTIONS (3)
  - Malaise [None]
  - Drug ineffective [None]
  - Product complaint [None]

NARRATIVE: CASE EVENT DATE: 20210224
